FAERS Safety Report 24338238 (Version 1)
Quarter: 2024Q3

REPORT INFORMATION
  Report Type: Spontaneous
  Country: US (occurrence: US)
  Receive Date: 20240919
  Receipt Date: 20240919
  Transmission Date: 20241017
  Serious: No
  Sender: ROCHE
  Company Number: US-ROCHE-10000082369

PATIENT
  Sex: Female

DRUGS (15)
  1. XOLAIR PFS [Suspect]
     Active Substance: OMALIZUMAB
     Indication: Dermatitis atopic
     Route: 058
  2. ADDERALL [Concomitant]
     Active Substance: AMPHETAMINE ASPARTATE\AMPHETAMINE SULFATE\DEXTROAMPHETAMINE SACCHARATE\DEXTROAMPHETAMINE SULFATE
     Route: 065
  3. ASPIRIN [Concomitant]
     Active Substance: ASPIRIN
  4. DORZOLAMIDE [Concomitant]
     Active Substance: DORZOLAMIDE
  5. FLUTICASONE [Concomitant]
     Active Substance: FLUTICASONE
  6. FUROSEMIDE [Concomitant]
     Active Substance: FUROSEMIDE
     Route: 065
  7. IPRATROPIUM [Concomitant]
     Active Substance: IPRATROPIUM
     Dosage: SOL 0.03%
  8. LUMIGAN [Concomitant]
     Active Substance: BIMATOPROST
     Dosage: SOL 0.01%
  9. OLANZAPINE [Concomitant]
     Active Substance: OLANZAPINE
  10. OLOPATADINE [Concomitant]
     Active Substance: OLOPATADINE
     Dosage: SOL 0.1%
  11. PREDNISONE [Concomitant]
     Active Substance: PREDNISONE
  12. RESTASIS [Concomitant]
     Active Substance: CYCLOSPORINE
  13. SPIRIVA [Concomitant]
     Active Substance: TIOTROPIUM BROMIDE MONOHYDRATE
     Dosage: HAND CAP 18MCG
  14. TYLENOL [Concomitant]
     Active Substance: ACETAMINOPHEN
  15. ADVAIR HFA [Concomitant]
     Active Substance: FLUTICASONE PROPIONATE\SALMETEROL XINAFOATE
     Dosage: DISKU AER 250/50

REACTIONS (2)
  - Off label use [Unknown]
  - No adverse event [Unknown]
